FAERS Safety Report 7515448-6 (Version None)
Quarter: 2011Q2

REPORT INFORMATION
  Report Type: 
  Country: None (occurrence: None)
  Receive Date: 20110601
  Receipt Date: 20100712
  Transmission Date: 20111010
  Serious: Yes (Hospitalization, Disabling, Other)
  Sender: FDA-Public Use
  Company Number: US-PFIZER INC-2009306308

PATIENT
  Sex: Male

DRUGS (1)
  1. CHANTIX [Suspect]
     Indication: SMOKING CESSATION THERAPY
     Dosage: 0.5/1MG, UNK
     Route: 048
     Dates: start: 20071128, end: 20071203

REACTIONS (4)
  - ARTHRALGIA [None]
  - PANIC ATTACK [None]
  - CONVULSION [None]
  - LOSS OF CONSCIOUSNESS [None]
